FAERS Safety Report 5954714-2 (Version None)
Quarter: 2008Q4

REPORT INFORMATION
  Report Type: 
  Country: None (occurrence: None)
  Receive Date: 20081117
  Receipt Date: 20081110
  Transmission Date: 20090506
  Serious: Yes (Hospitalization)
  Sender: FDA-Public Use
  Company Number: PHEH2008US09534

PATIENT
  Sex: Female

DRUGS (2)
  1. ENABLEX [Suspect]
     Indication: INCONTINENCE
     Dosage: 1 TAB PO QD
     Route: 048
     Dates: start: 20080701, end: 20081001
  2. ENABLEX [Suspect]
     Dosage: 2 TABS PO QD
     Route: 048
     Dates: start: 20081001

REACTIONS (3)
  - ABDOMINAL HERNIA [None]
  - DRUG INEFFECTIVE [None]
  - PULMONARY EMBOLISM [None]
